FAERS Safety Report 7114753-5 (Version None)
Quarter: 2010Q4

REPORT INFORMATION
  Report Type: 
  Country: None (occurrence: None)
  Receive Date: 20101122
  Receipt Date: 20101110
  Transmission Date: 20110411
  Serious: No
  Sender: FDA-Public Use
  Company Number: US-BIOGENIDEC-2010BI031707

PATIENT
  Age: 31 Year
  Sex: Female

DRUGS (3)
  1. TYSABRI [Suspect]
     Indication: MULTIPLE SCLEROSIS
     Route: 042
     Dates: start: 20100630
  2. IV STEROIDS (NOS) [Concomitant]
     Indication: MULTIPLE SCLEROSIS RELAPSE
     Route: 042
  3. STEROID TAPER (NOS) [Concomitant]
     Indication: MULTIPLE SCLEROSIS RELAPSE
     Route: 048

REACTIONS (8)
  - CONJUNCTIVITIS INFECTIVE [None]
  - GENERAL SYMPTOM [None]
  - HERPES ZOSTER [None]
  - LETHARGY [None]
  - PYREXIA [None]
  - SYPHILIS [None]
  - VULVOVAGINAL MYCOTIC INFECTION [None]
  - VULVOVAGINAL PRURITUS [None]
